FAERS Safety Report 9240998 (Version 1)
Quarter: 2013Q2

REPORT INFORMATION
  Report Type: Spontaneous
  Country: US (occurrence: None)
  Receive Date: 20130418
  Receipt Date: 20130418
  Transmission Date: 20140414
  Serious: Yes (Other)
  Sender: FDA-Public Use
  Company Number: None

PATIENT
  Age: 32 Year
  Sex: Female
  Weight: 97.07 kg

DRUGS (1)
  1. LEVOTHYROXINE 50 MCG MYLAN [Suspect]
     Dosage: 75 MCG  DAILY  ORAL
     Route: 048

REACTIONS (2)
  - Alopecia [None]
  - Drug ineffective [None]
